FAERS Safety Report 24146591 (Version 1)
Quarter: 2024Q3

REPORT INFORMATION
  Report Type: Spontaneous
  Country: AU (occurrence: AU)
  Receive Date: 20240729
  Receipt Date: 20240729
  Transmission Date: 20241016
  Serious: Yes (Other)
  Sender: ACCORD
  Company Number: None

PATIENT
  Age: 35 Year
  Sex: Female

DRUGS (1)
  1. PACLITAXEL [Suspect]
     Active Substance: PACLITAXEL
     Indication: Product used for unknown indication

REACTIONS (6)
  - Chest pain [Unknown]
  - Chest discomfort [Unknown]
  - Chills [Unknown]
  - Feeling hot [Unknown]
  - Swollen tongue [Unknown]
  - Syncope [Unknown]
